FAERS Safety Report 22125214 (Version 1)
Quarter: 2023Q1

REPORT INFORMATION
  Report Type: Spontaneous
  Country: FR (occurrence: FR)
  Receive Date: 20230322
  Receipt Date: 20230322
  Transmission Date: 20230418
  Serious: Yes (Hospitalization)
  Sender: FDA-Public Use
  Company Number: None

PATIENT
  Age: 43 Year
  Sex: Female
  Weight: 56 kg

DRUGS (4)
  1. ETHINYL ESTRADIOL\LEVONORGESTREL [Suspect]
     Active Substance: ETHINYL ESTRADIOL\LEVONORGESTREL
     Indication: Contraception
     Dosage: 1 TABLET/DAY, 21 DAYS PER MONTH
     Route: 048
     Dates: start: 200310, end: 201007
  2. ETHINYL ESTRADIOL\LEVONORGESTREL [Suspect]
     Active Substance: ETHINYL ESTRADIOL\LEVONORGESTREL
     Indication: Contraception
     Dosage: 1 TABLET/DAY, 21 DAYS PER MONTH
     Route: 048
     Dates: start: 200308, end: 200310
  3. DUPHASTON [Suspect]
     Active Substance: DYDROGESTERONE
     Indication: Menometrorrhagia
     Dosage: UNK
     Route: 048
     Dates: start: 20000201, end: 20030801
  4. DESOGESTREL\ETHINYL ESTRADIOL [Suspect]
     Active Substance: DESOGESTREL\ETHINYL ESTRADIOL
     Indication: Contraception
     Dosage: 1 TABLET/DAY, 21 DAYS PER MONTH
     Route: 048
     Dates: start: 201007, end: 202107

REACTIONS (1)
  - Meningioma [Recovered/Resolved with Sequelae]

NARRATIVE: CASE EVENT DATE: 20140808
